FAERS Safety Report 8905564 (Version 2)
Quarter: 2012Q4

REPORT INFORMATION
  Report Type: 
  Country: ES (occurrence: ES)
  Receive Date: 20121113
  Receipt Date: 20121130
  Transmission Date: 20130627
  Serious: Yes (Hospitalization)
  Sender: FDA-Public Use
  Company Number: ES-UCBSA-070664

PATIENT
  Age: 5 Year
  Sex: Female

DRUGS (17)
  1. LEVETIRACETAM [Suspect]
     Indication: MYOCLONIC EPILEPSY
  2. LEVETIRACETAM [Suspect]
     Indication: STATUS EPILEPTICUS
  3. CLONACEPAM [Suspect]
     Indication: MYOCLONIC EPILEPSY
  4. CLONACEPAM [Suspect]
     Indication: STATUS EPILEPTICUS
  5. OXCARBACEPINE [Suspect]
     Indication: MYOCLONIC EPILEPSY
  6. OXCARBACEPINE [Suspect]
     Indication: STATUS EPILEPTICUS
  7. MIDAZOLAM [Suspect]
     Indication: STATUS EPILEPTICUS
  8. MIDAZOLAM [Suspect]
     Indication: MYOCLONIC EPILEPSY
  9. ETHOSUXIMIDE [Suspect]
     Indication: MYOCLONIC EPILEPSY
  10. ETHOSUXIMIDE [Suspect]
     Indication: STATUS EPILEPTICUS
  11. VALPROATE [Suspect]
     Indication: STATUS EPILEPTICUS
  12. VALPROATE [Suspect]
     Indication: MYOCLONIC EPILEPSY
  13. PHENYTOIN [Suspect]
     Indication: STATUS EPILEPTICUS
  14. PHENYTOIN [Suspect]
     Indication: MYOCLONIC EPILEPSY
  15. PHENOBARBITALE [Suspect]
     Indication: STATUS EPILEPTICUS
  16. PHENOBARBITALE [Suspect]
     Indication: MYOCLONIC EPILEPSY
  17. ASPIRIN [Concomitant]

REACTIONS (1)
  - Drug ineffective for unapproved indication [Not Recovered/Not Resolved]
